FAERS Safety Report 25739137 (Version 1)
Quarter: 2025Q3

REPORT INFORMATION
  Report Type: Spontaneous
  Country: IN (occurrence: IN)
  Receive Date: 20250829
  Receipt Date: 20250829
  Transmission Date: 20251020
  Serious: Yes (Other)
  Sender: ADAPTIS PHARMA INDIA
  Company Number: IN-Adaptis Pharma Private Limited-2183450

PATIENT
  Age: 12 Year
  Sex: Male

DRUGS (1)
  1. PREGABALIN [Suspect]
     Active Substance: PREGABALIN
     Indication: Sleep disorder

REACTIONS (12)
  - Intentional overdose [Unknown]
  - Product use in unapproved indication [Unknown]
  - Abnormal behaviour [Unknown]
  - Vomiting [Unknown]
  - Headache [Unknown]
  - Pain in extremity [Unknown]
  - Paraesthesia [Unknown]
  - Insomnia [Unknown]
  - Feeling jittery [Unknown]
  - Restlessness [Unknown]
  - Irritability [Unknown]
  - Tobacco user [Unknown]
